FAERS Safety Report 5270157-1 (Version None)
Quarter: 2007Q1

REPORT INFORMATION
  Report Type: 
  Country: None (occurrence: None)
  Receive Date: 20070314
  Receipt Date: 20070228
  Transmission Date: 20070707
  Serious: Yes (Hospitalization, Disabling, Other)
  Sender: FDA-Public Use
  Company Number: US019214

PATIENT
  Age: 79 Year
  Sex: Male

DRUGS (6)
  1. TRISENOX [Suspect]
     Indication: ACUTE PROMYELOCYTIC LEUKAEMIA
     Dosage: 8.0625MG
     Dates: start: 20061220
  2. DISOPYRAMIDE PHOSPHATE [Concomitant]
  3. MEXILETINE HYDROCHLORIDE [Concomitant]
  4. NIFEDIPINE [Concomitant]
  5. HALOXAZOLAM [Concomitant]
  6. ZOLPIDEM TARTRATE [Concomitant]

REACTIONS (8)
  - ALANINE AMINOTRANSFERASE INCREASED [None]
  - ASPARTATE AMINOTRANSFERASE INCREASED [None]
  - ELECTROCARDIOGRAM QT PROLONGED [None]
  - FACIAL PALSY [None]
  - HEPATIC FUNCTION ABNORMAL [None]
  - HERPES ZOSTER [None]
  - LIVER DISORDER [None]
  - RASH [None]
